FAERS Safety Report 8578079-5 (Version None)
Quarter: 2012Q3

REPORT INFORMATION
  Report Type: 
  Country: None (occurrence: None)
  Receive Date: 20120808
  Receipt Date: 20120806
  Transmission Date: 20120928
  Serious: Yes (Hospitalization)
  Sender: FDA-Public Use
  Company Number: PHHY2012AU063899

PATIENT
  Sex: Male

DRUGS (2)
  1. ZOLEDRONOC ACID [Suspect]
     Dosage: 5 MG
     Route: 042
     Dates: start: 20110302
  2. ZOLEDRONOC ACID [Suspect]
     Dosage: 5 MG
     Route: 042
     Dates: start: 20120723

REACTIONS (3)
  - HYPOGLYCAEMIA [None]
  - NASOPHARYNGITIS [None]
  - COUGH [None]
